FAERS Safety Report 5913040-8 (Version None)
Quarter: 2008Q4

REPORT INFORMATION
  Report Type: 
  Country: None (occurrence: None)
  Receive Date: 20081008
  Receipt Date: 20081001
  Transmission Date: 20090506
  Serious: Yes (Other)
  Sender: FDA-Public Use
  Company Number: FR-PFIZER INC-2008083126

PATIENT
  Sex: Male

DRUGS (5)
  1. SALAZOPYRINE [Suspect]
     Indication: SPONDYLITIS
     Dates: start: 20080101, end: 20080101
  2. CORTICOSTEROID NOS [Concomitant]
  3. SUBUTEX [Concomitant]
     Indication: DRUG TOXICITY
  4. TERCIAN [Concomitant]
  5. HAVLANE [Concomitant]

REACTIONS (1)
  - ASTHMA [None]
